FAERS Safety Report 20617615 (Version 1)
Quarter: 2022Q1

REPORT INFORMATION
  Report Type: Spontaneous
  Country: US (occurrence: None)
  Receive Date: 20220321
  Receipt Date: 20220321
  Transmission Date: 20220423
  Serious: Yes (Hospitalization)
  Sender: FDA-Public Use
  Company Number: None

PATIENT
  Sex: Female

DRUGS (1)
  1. BOTOX [Suspect]
     Active Substance: ONABOTULINUMTOXINA
     Indication: Muscle spasticity
     Dates: start: 20210708

REACTIONS (6)
  - Fall [None]
  - Head injury [None]
  - Contusion [None]
  - Cerebral haemorrhage [None]
  - Amnesia [None]
  - Stiff leg syndrome [None]
